FAERS Safety Report 5449118-5 (Version None)
Quarter: 2007Q3

REPORT INFORMATION
  Report Type: 
  Country: None (occurrence: None)
  Receive Date: 20070911
  Receipt Date: 20070904
  Transmission Date: 20080115
  Serious: Yes (Hospitalization)
  Sender: FDA-Public Use
  Company Number: US-GENENTECH-247168

PATIENT
  Sex: Female
  Weight: 49.1 kg

DRUGS (5)
  1. SOMATROPIN [Suspect]
     Indication: PITUITARY HYPOPLASIA
     Dosage: 3 MG, 7/WEEK
     Dates: start: 19990323
  2. DESMOPRESSIN ACETATE [Concomitant]
     Indication: DRUG USE FOR UNKNOWN INDICATION
     Dosage: 0.2 MG, BID
     Route: 048
  3. LEVOTHYROXINE SODIUM [Concomitant]
     Indication: DRUG USE FOR UNKNOWN INDICATION
     Dosage: 125 A?G, QAM
     Route: 048
  4. HYDROCORTISONE [Concomitant]
     Indication: DRUG USE FOR UNKNOWN INDICATION
     Dosage: 10 MG, BID
     Route: 048
  5. PREMARIN [Concomitant]
     Indication: DRUG USE FOR UNKNOWN INDICATION
     Dosage: 0.3 MG, QOD
     Route: 048

REACTIONS (1)
  - GASTROENTERITIS [None]
